FAERS Safety Report 9957639 (Version 2)
Quarter: 2014Q1

REPORT INFORMATION
  Report Type: Report from Study
  Country: US (occurrence: US)
  Receive Date: 20140304
  Receipt Date: 20140304
  Transmission Date: 20141002
  Serious: No
  Sender: FDA-Public Use
  Company Number: US-ABBVIE-12P-163-1013423-00

PATIENT
  Age: 77 Year
  Sex: Male

DRUGS (26)
  1. HUMIRA [Suspect]
     Indication: CROHN^S DISEASE
     Dosage: LOADING DOSE
     Route: 058
     Dates: start: 20121113, end: 20121113
  2. HUMIRA [Suspect]
  3. COMBIVENT [Concomitant]
     Indication: CHRONIC OBSTRUCTIVE PULMONARY DISEASE
     Dosage: 2 PUFFS 4 TIMES DAILY
  4. ASACOL [Concomitant]
     Indication: CROHN^S DISEASE
  5. IMODIUM [Concomitant]
     Indication: DIARRHOEA
  6. BENADRYL [Concomitant]
     Indication: INSOMNIA
  7. ENTOCORT [Concomitant]
     Indication: CROHN^S DISEASE
  8. SILDENAFIL [Concomitant]
     Indication: ERECTILE DYSFUNCTION
  9. LOPRESSOR [Concomitant]
     Indication: HYPERTENSION
  10. TYLENOL [Concomitant]
     Indication: BACK PAIN
  11. LIDOCAINE [Concomitant]
     Indication: PROCTALGIA
  12. FLONASE [Concomitant]
     Indication: CHRONIC OBSTRUCTIVE PULMONARY DISEASE
  13. CARDURA [Concomitant]
     Indication: URINARY TRACT DISORDER
     Dosage: AT NIGHT
  14. CARDURA [Concomitant]
     Indication: PROSTATOMEGALY
  15. LIPITOR [Concomitant]
     Indication: HYPERCHOLESTEROLAEMIA
     Dosage: AT NIGHT
  16. ALTACE [Concomitant]
     Indication: BLOOD PRESSURE MANAGEMENT
  17. MIRALAX [Concomitant]
     Indication: CONSTIPATION
  18. LANTUS [Concomitant]
     Indication: DIABETES MELLITUS
     Dosage: EVERY NIGHT
  19. NOVOLOG [Concomitant]
     Indication: DIABETES MELLITUS
     Dosage: PER SLIDING SCALE; AS NEEDED
  20. CILOSTAZOL [Concomitant]
     Indication: BLOOD PRESSURE MANAGEMENT
  21. PROTONIX [Concomitant]
     Indication: BLOOD PRESSURE MANAGEMENT
  22. PLAVIX [Concomitant]
     Indication: HYPERCHOLESTEROLAEMIA
     Dosage: 75MG DAILY
  23. NEURONTIN [Concomitant]
     Indication: PAIN IN EXTREMITY
  24. TRAMADOL [Concomitant]
     Indication: PAIN
  25. NORVASC [Concomitant]
     Indication: BLOOD PRESSURE MANAGEMENT
  26. ALFUZOSIN [Concomitant]
     Indication: PROSTATIC DISORDER

REACTIONS (1)
  - Injection site pain [Recovered/Resolved]
